FAERS Safety Report 9351297 (Version 1)
Quarter: 2013Q2

REPORT INFORMATION
  Report Type: Spontaneous
  Country: FR (occurrence: FR)
  Receive Date: 20130617
  Receipt Date: 20130617
  Transmission Date: 20140414
  Serious: Yes (Other)
  Sender: FDA-Public Use
  Company Number: PHHY2013FR060093

PATIENT
  Age: 74 Year
  Sex: Male

DRUGS (6)
  1. LEVETIRACETAM [Suspect]
     Indication: EPILEPSY
     Dosage: 1 G, BID
     Route: 042
  2. PHENOBARBITAL [Concomitant]
  3. ATORVASTATINE [Concomitant]
  4. ACENOCOUMAROL [Concomitant]
  5. ALPRAZOLAM [Concomitant]
  6. ZOLPIDEM [Concomitant]

REACTIONS (1)
  - Hypoglycaemia [Recovered/Resolved]
